FAERS Safety Report 17886756 (Version 2)
Quarter: 2020Q2

REPORT INFORMATION
  Report Type: Other
  Country: US (occurrence: US)
  Receive Date: 20200611
  Receipt Date: 20200611
  Transmission Date: 20200714
  Serious: No
  Sender: FDA-Public Use
  Company Number: US-ASCENT PHARMACEUTICALS, INC.-2085689

PATIENT

DRUGS (1)
  1. METHYLPHENIDATE HYDROCHLORIDE. [Suspect]
     Active Substance: METHYLPHENIDATE HYDROCHLORIDE
     Indication: PRODUCT USED FOR UNKNOWN INDICATION
     Route: 048
     Dates: start: 20200224

REACTIONS (7)
  - Product substitution issue [Unknown]
  - Headache [Unknown]
  - Irritability [Unknown]
  - Drug ineffective [Unknown]
  - Unevaluable event [Unknown]
  - Oedema peripheral [Unknown]
  - Product quality issue [Unknown]

NARRATIVE: CASE EVENT DATE: 20200302
